FAERS Safety Report 8327058-1 (Version None)
Quarter: 2012Q2

REPORT INFORMATION
  Report Type: 
  Country: None (occurrence: None)
  Receive Date: 20120501
  Receipt Date: 20120424
  Transmission Date: 20120825
  Serious: Yes (Hospitalization)
  Sender: FDA-Public Use
  Company Number: IT-TEVA-335548ISR

PATIENT
  Sex: Male
  Weight: 73 kg

DRUGS (2)
  1. ARSENIC TRIOXIDE [Suspect]
     Dates: start: 20120330, end: 20120405
  2. TRANSRETINOIC ACID [Suspect]
     Dates: start: 20120330, end: 20120405

REACTIONS (1)
  - HEPATOTOXICITY [None]
